FAERS Safety Report 6423552-9 (Version None)
Quarter: 2009Q4

REPORT INFORMATION
  Report Type: 
  Country: None (occurrence: None)
  Receive Date: 20091102
  Receipt Date: 20090814
  Transmission Date: 20100525
  Serious: No
  Sender: FDA-Public Use
  Company Number: A0803134A

PATIENT
  Age: 60 Year
  Sex: Male

DRUGS (2)
  1. RYTHMOL SR [Suspect]
     Indication: ATRIAL FIBRILLATION
     Dosage: 325MG TWICE PER DAY
     Dates: start: 20090622
  2. PROPAFENONE HCL [Concomitant]
     Dosage: 225MG TWICE PER DAY
     Dates: start: 20071107, end: 20090622

REACTIONS (1)
  - HEART RATE DECREASED [None]
